FAERS Safety Report 7016902-6 (Version None)
Quarter: 2010Q3

REPORT INFORMATION
  Report Type: 
  Country: None (occurrence: None)
  Receive Date: 20100927
  Receipt Date: 20100917
  Transmission Date: 20110219
  Serious: Yes (Other)
  Sender: FDA-Public Use
  Company Number: US-AMGEN-QUU439485

PATIENT
  Sex: Male

DRUGS (2)
  1. NPLATE [Suspect]
     Indication: IDIOPATHIC THROMBOCYTOPENIC PURPURA
     Dates: start: 20100728
  2. LEVAQUIN [Concomitant]
     Route: 042

REACTIONS (4)
  - HAEMATOMA [None]
  - MYELODYSPLASTIC SYNDROME [None]
  - RENAL CYST [None]
  - THROMBOSIS [None]
